FAERS Safety Report 14559887 (Version 1)
Quarter: 2018Q1

REPORT INFORMATION
  Report Type: Spontaneous
  Country: US (occurrence: US)
  Receive Date: 20180220
  Receipt Date: 20180220
  Transmission Date: 20180509
  Serious: Yes (Hospitalization)
  Sender: FDA-Public Use
  Company Number: None

PATIENT
  Age: 72 Year
  Sex: Male
  Weight: 50.6 kg

DRUGS (10)
  1. ASPIRIN. [Concomitant]
     Active Substance: ASPIRIN
  2. NIACIN. [Concomitant]
     Active Substance: NIACIN
  3. OXYCODONE [Concomitant]
     Active Substance: OXYCODONE
  4. ENOXAPARIN [Concomitant]
     Active Substance: ENOXAPARIN
  5. NITROGLYCERIN. [Concomitant]
     Active Substance: NITROGLYCERIN
  6. INSULIN LISPRO PROTAMINE-INSULIN LISPRO [Concomitant]
  7. STIVARGA [Suspect]
     Active Substance: REGORAFENIB
  8. METOPROLOL TARTRATE. [Concomitant]
     Active Substance: METOPROLOL TARTRATE
  9. LISINOPRIL. [Concomitant]
     Active Substance: LISINOPRIL
  10. REGORAFENIB [Concomitant]
     Active Substance: REGORAFENIB

REACTIONS (3)
  - Mental status changes [None]
  - Dehydration [None]
  - Fatigue [None]

NARRATIVE: CASE EVENT DATE: 20171123
